FAERS Safety Report 18967541 (Version 2)
Quarter: 2021Q1

REPORT INFORMATION
  Report Type: Spontaneous
  Country: US (occurrence: US)
  Receive Date: 20210304
  Receipt Date: 20210309
  Transmission Date: 20210420
  Serious: No
  Sender: FDA-Public Use
  Company Number: US-GLAXOSMITHKLINE-US2021056558

PATIENT
  Sex: Female

DRUGS (1)
  1. NUCALA [Suspect]
     Active Substance: MEPOLIZUMAB
     Indication: ASTHMA
     Dosage: UNK
     Route: 058

REACTIONS (6)
  - Wheezing [Unknown]
  - Drug ineffective [Unknown]
  - Fatigue [Unknown]
  - Underdose [Unknown]
  - Wrong technique in device usage process [Unknown]
  - Cough [Unknown]
